FAERS Safety Report 10265385 (Version 1)
Quarter: 2014Q2

REPORT INFORMATION
  Report Type: Spontaneous
  Country: US (occurrence: US)
  Receive Date: 20140627
  Receipt Date: 20140627
  Transmission Date: 20141212
  Serious: Yes (Other)
  Sender: FDA-Public Use
  Company Number: US-LUNDBECK-DKLU1101282

PATIENT
  Sex: Female

DRUGS (2)
  1. ONFI (ORAL SUSPENSION) [Suspect]
     Indication: INFANTILE SPASMS
     Route: 048
     Dates: start: 20140606, end: 20140615
  2. FELBAMATE [Concomitant]
     Indication: PRODUCT USED FOR UNKNOWN INDICATION

REACTIONS (2)
  - Convulsion [Unknown]
  - Drug ineffective [Unknown]
